FAERS Safety Report 18899051 (Version 1)
Quarter: 2021Q1

REPORT INFORMATION
  Report Type: Spontaneous
  Country: US (occurrence: US)
  Receive Date: 20210216
  Receipt Date: 20210216
  Transmission Date: 20210420
  Serious: Yes (Other)
  Sender: FDA-Public Use
  Company Number: US-SA-2021SA048909

PATIENT
  Sex: Female
  Weight: 135 kg

DRUGS (7)
  1. FUROSEMIDE. [Concomitant]
     Active Substance: FUROSEMIDE
  2. BABY ASPIRIN [Concomitant]
     Active Substance: ASPIRIN
  3. PLAVIX [Suspect]
     Active Substance: CLOPIDOGREL BISULFATE
     Indication: CEREBROVASCULAR ACCIDENT
     Dosage: UNK UNK, QD
  4. CLOPIDOGREL [Concomitant]
     Active Substance: CLOPIDOGREL BISULFATE
  5. FOLIC ACID;LITHIUM CARBONATE [Concomitant]
  6. LOPRESSOR [Concomitant]
     Active Substance: METOPROLOL TARTRATE
     Indication: CARDIAC FAILURE CONGESTIVE
     Dosage: 75 MG
  7. METOX [METOPROLOL] [Concomitant]
     Indication: BLOOD PRESSURE MEASUREMENT

REACTIONS (4)
  - Cardiac failure congestive [Unknown]
  - Cerebrovascular accident [Unknown]
  - Pain [Unknown]
  - Confusional state [Unknown]
